FAERS Safety Report 12045093 (Version 1)
Quarter: 2016Q1

REPORT INFORMATION
  Report Type: Report from Study
  Country: US (occurrence: US)
  Receive Date: 20160208
  Receipt Date: 20160208
  Transmission Date: 20160526
  Serious: Yes (Hospitalization)
  Sender: FDA-Public Use
  Company Number: US-ABBVIE-15P-163-1343213-00

PATIENT
  Age: 62 Year
  Sex: Female

DRUGS (3)
  1. HUMIRA [Suspect]
     Active Substance: ADALIMUMAB
     Route: 065
     Dates: start: 2015
  2. HUMIRA [Suspect]
     Active Substance: ADALIMUMAB
     Indication: CROHN^S DISEASE
     Route: 065
     Dates: start: 20150117, end: 20150117
  3. HUMIRA [Suspect]
     Active Substance: ADALIMUMAB
     Route: 065
     Dates: start: 20150131, end: 20150131

REACTIONS (10)
  - Alopecia [Recovering/Resolving]
  - Hair texture abnormal [Unknown]
  - Nausea [Unknown]
  - Drug ineffective [Unknown]
  - Injection site pain [Unknown]
  - Pleural effusion [Recovering/Resolving]
  - Pulmonary embolism [Recovered/Resolved]
  - Chest discomfort [Unknown]
  - Fibrin D dimer increased [Unknown]
  - Nausea [Recovered/Resolved]

NARRATIVE: CASE EVENT DATE: 2015
